FAERS Safety Report 5659816-6 (Version None)
Quarter: 2008Q1

REPORT INFORMATION
  Report Type: 
  Country: None (occurrence: None)
  Receive Date: 20080311
  Receipt Date: 20070723
  Transmission Date: 20080703
  Serious: No
  Sender: FDA-Public Use
  Company Number: US-BAYER-200712348BCC

PATIENT
  Age: 72 Year
  Sex: Female
  Weight: 70 kg

DRUGS (6)
  1. ALEVE [Suspect]
     Indication: ARTHRITIS
     Dosage: AS USED: 440/220 MG  UNIT DOSE: 220 MG
     Route: 048
     Dates: start: 20070720, end: 20070722
  2. VOLTAREN [Concomitant]
  3. LOTREL [Concomitant]
  4. WALGREENS MULTIVITAMIN [Concomitant]
  5. FISH OIL [Concomitant]
  6. GLUCOSAMINE [Concomitant]

REACTIONS (1)
  - ARTHRITIS [None]
